FAERS Safety Report 23397224 (Version 1)
Quarter: 2024Q1

REPORT INFORMATION
  Report Type: Spontaneous
  Country: CN (occurrence: CN)
  Receive Date: 20240112
  Receipt Date: 20240112
  Transmission Date: 20240409
  Serious: Yes (Hospitalization, Other)
  Sender: FDA-Public Use
  Company Number: CN-SANDOZ-SDZ2024CN002971

PATIENT
  Age: 63 Year
  Sex: Male

DRUGS (12)
  1. ASPIRIN [Suspect]
     Active Substance: ASPIRIN
     Indication: Cerebral infarction
     Dosage: ENTERIC-COATED TABLETS
     Route: 048
  2. ASPIRIN [Suspect]
     Active Substance: ASPIRIN
     Indication: Arteriosclerosis
  3. BUTYLPHTHALIDE [Suspect]
     Active Substance: BUTYLPHTHALIDE
     Indication: Cerebral infarction
     Dosage: 0.2 G, TID
     Route: 065
  4. BUTYLPHTHALIDE [Suspect]
     Active Substance: BUTYLPHTHALIDE
     Indication: Arteriosclerosis
  5. BUTYLPHTHALIDE [Suspect]
     Active Substance: BUTYLPHTHALIDE
     Indication: Cerebral infarction
     Dosage: 25 MG, BID
     Route: 042
  6. BUTYLPHTHALIDE [Suspect]
     Active Substance: BUTYLPHTHALIDE
     Indication: Arteriosclerosis
  7. DEXBORNEOL\EDARAVONE [Suspect]
     Active Substance: DEXBORNEOL\EDARAVONE
     Indication: Cerebral infarction
     Dosage: CONCENTRATED SOLUTION FOR INJECTION
     Route: 042
  8. DEXBORNEOL\EDARAVONE [Suspect]
     Active Substance: DEXBORNEOL\EDARAVONE
     Indication: Arteriosclerosis
  9. ROSUVASTATIN CALCIUM [Suspect]
     Active Substance: ROSUVASTATIN CALCIUM
     Indication: Cerebral infarction
     Dosage: 5 MG, QD
     Route: 048
  10. ROSUVASTATIN CALCIUM [Suspect]
     Active Substance: ROSUVASTATIN CALCIUM
     Indication: Arteriosclerosis
  11. ATORVASTATIN CALCIUM [Suspect]
     Active Substance: ATORVASTATIN CALCIUM
     Indication: Cerebral infarction
     Dosage: 20 MG, QD
     Route: 065
  12. ATORVASTATIN CALCIUM [Suspect]
     Active Substance: ATORVASTATIN CALCIUM
     Indication: Arteriosclerosis

REACTIONS (1)
  - Drug reaction with eosinophilia and systemic symptoms [Recovered/Resolved]
